FAERS Safety Report 4306810-3 (Version None)
Quarter: 2004Q1

REPORT INFORMATION
  Report Type: 
  Country: None (occurrence: None)
  Receive Date: 20040227
  Receipt Date: 20040206
  Transmission Date: 20041129
  Serious: Yes (Death, Other)
  Sender: FDA-Public Use
  Company Number: JP-BRISTOL-MYERS SQUIBB COMPANY-12499240

PATIENT
  Age: 78 Year
  Sex: Male

DRUGS (10)
  1. PARAPLATIN [Suspect]
     Indication: HEPATIC CANCER METASTATIC
     Route: 042
     Dates: start: 20030212, end: 20030214
  2. HYCAMTIN [Suspect]
     Indication: HEPATIC CANCER METASTATIC
     Route: 042
     Dates: start: 20030212, end: 20030214
  3. SOLU-CORTEF [Concomitant]
     Route: 042
     Dates: start: 20030212, end: 20030214
  4. LASIX [Concomitant]
     Route: 042
     Dates: start: 20030212, end: 20030214
  5. ACETAMINOPHEN [Concomitant]
     Route: 048
     Dates: start: 20021126
  6. ULCERLMIN [Concomitant]
     Route: 048
     Dates: start: 20010201
  7. URSO [Concomitant]
     Route: 048
     Dates: start: 19870101
  8. ZYLORIC [Concomitant]
     Route: 048
     Dates: start: 19960813
  9. BASEN [Concomitant]
     Route: 048
     Dates: start: 20010326
  10. GASTER D [Concomitant]
     Route: 048
     Dates: start: 20010201

REACTIONS (6)
  - DIARRHOEA HAEMORRHAGIC [None]
  - GASTROINTESTINAL HAEMORRHAGE [None]
  - HAEMOGLOBIN DECREASED [None]
  - HEPATIC CANCER METASTATIC [None]
  - MALIGNANT NEOPLASM PROGRESSION [None]
  - PLATELET COUNT DECREASED [None]
